FAERS Safety Report 5272613-9 (Version None)
Quarter: 2007Q1

REPORT INFORMATION
  Report Type: 
  Country: None (occurrence: None)
  Receive Date: 20070320
  Receipt Date: 20070320
  Transmission Date: 20070707
  Serious: Yes (Hospitalization)
  Sender: FDA-Public Use
  Company Number: None

PATIENT
  Age: 61 Year
  Sex: Male
  Weight: 155.1302 kg

DRUGS (2)
  1. BUMEX [Suspect]
     Indication: CARDIAC FAILURE CONGESTIVE
     Dosage: 2MG BID PO
     Route: 048
  2. LISINOPRIL [Suspect]
     Indication: CARDIAC FAILURE CONGESTIVE
     Dosage: 40MG QD PO
     Route: 048

REACTIONS (4)
  - BLOOD POTASSIUM INCREASED [None]
  - BLOOD PRESSURE DECREASED [None]
  - CHEST PAIN [None]
  - RENAL FAILURE ACUTE [None]
